FAERS Safety Report 9130217 (Version 4)
Quarter: 2013Q2

REPORT INFORMATION
  Report Type: Spontaneous
  Country: US (occurrence: US)
  Receive Date: 20130228
  Receipt Date: 20130419
  Transmission Date: 20140414
  Serious: Yes (Life-Threatening, Hospitalization, Disabling, Other)
  Sender: FDA-Public Use
  Company Number: US-009507513-1302USA011087

PATIENT
  Sex: Female
  Weight: 58.5 kg

DRUGS (2)
  1. TEMODAR [Suspect]
     Indication: NEOPLASM MALIGNANT
     Dosage: 200 MG, UNK
     Route: 048
     Dates: start: 2013
  2. TEMODAR [Suspect]
     Dosage: 130 MG, QD
     Route: 048
     Dates: start: 201211

REACTIONS (10)
  - Blood pressure decreased [Recovering/Resolving]
  - Splenectomy [Unknown]
  - Dyspnoea [Recovering/Resolving]
  - Adenomatous polyposis coli [Unknown]
  - Vomiting [Recovering/Resolving]
  - White blood cell count decreased [Recovering/Resolving]
  - Thrombocytopenia [Unknown]
  - Incorrect dose administered [Unknown]
  - Haemolytic anaemia [Not Recovered/Not Resolved]
  - Autoimmune thrombocytopenia [Not Recovered/Not Resolved]
